FAERS Safety Report 5887852-3 (Version None)
Quarter: 2008Q3

REPORT INFORMATION
  Report Type: 
  Country: None (occurrence: None)
  Receive Date: 20080918
  Receipt Date: 20080911
  Transmission Date: 20090109
  Serious: Yes (Other)
  Sender: FDA-Public Use
  Company Number: JP-ABBOTT-08P-087-0476720-00

PATIENT
  Age: 75 Year
  Sex: Male

DRUGS (1)
  1. LEUPLIN FOR INJECTION KIT 3.75 MG [Suspect]
     Indication: PROSTATE CANCER
     Route: 058
     Dates: start: 20080630

REACTIONS (2)
  - ERYTHEMA MULTIFORME [None]
  - RASH [None]
